FAERS Safety Report 5300625-5 (Version None)
Quarter: 2007Q2

REPORT INFORMATION
  Report Type: 
  Country: None (occurrence: None)
  Receive Date: 20070418
  Receipt Date: 20070406
  Transmission Date: 20071010
  Serious: Yes (Hospitalization)
  Sender: FDA-Public Use
  Company Number: PHEH2007US04428

PATIENT
  Sex: Female

DRUGS (18)
  1. ZELNORM [Suspect]
     Indication: CONSTIPATION
     Dosage: 6 MG, BID
     Dates: end: 20070405
  2. FOSAMAX [Concomitant]
     Dosage: UNK, UNK
  3. PLAVIX [Concomitant]
     Dosage: UNK, UNK
  4. DETROL [Concomitant]
     Dosage: UNK, UNK
  5. POTASSIUM ACETATE [Concomitant]
     Dosage: UNK, UNK
  6. ZITHROMAX [Concomitant]
     Indication: SINUSITIS
     Dosage: UNK, PRN
  7. DARVOCET-N 100 [Concomitant]
     Dosage: UNK, UNK
  8. LIPITOR [Concomitant]
     Dosage: UNK, UNK
  9. PREMARIN [Concomitant]
     Dosage: UNK, UNK
  10. LEVOTHYROXINE SODIUM [Concomitant]
     Dosage: UNK, UNK
  11. ZOLOFT [Concomitant]
     Dosage: UNK, UNK
  12. ALPRAZOLAM [Concomitant]
     Dosage: UNK, UNK
  13. LUNESTA [Concomitant]
     Dosage: UNK, UNK
  14. ASPIRIN [Concomitant]
     Dosage: 81MG, UNK
  15. OMEPRAZOLE [Concomitant]
     Dosage: UNK, UNK
  16. NORVASC [Concomitant]
     Dosage: UNK, UNK
  17. HYZAAR [Concomitant]
     Dosage: UNK, UNK
  18. ATENOLOL [Concomitant]
     Dosage: UNK, UNK

REACTIONS (2)
  - HEADACHE [None]
  - HEART RATE INCREASED [None]
